FAERS Safety Report 8991448 (Version 1)
Quarter: 2012Q4

REPORT INFORMATION
  Report Type: Report from Study
  Country: CA (occurrence: CA)
  Receive Date: 20121231
  Receipt Date: 20121231
  Transmission Date: 20130627
  Serious: Yes (Other)
  Sender: FDA-Public Use
  Company Number: CA-ROCHE-1172570

PATIENT
  Age: 48 Year
  Sex: Female
  Weight: 110.14 kg

DRUGS (18)
  1. OMALIZUMAB [Suspect]
     Indication: ASTHMA
     Dosage: 300 mg, Q2W
     Route: 058
     Dates: start: 20060111
  2. OMALIZUMAB [Suspect]
     Dosage: 300 mg, Q2W
     Route: 058
     Dates: start: 20060125
  3. OMALIZUMAB [Suspect]
     Dosage: 300 mg, Q2W
     Route: 058
     Dates: start: 20091014
  4. OMALIZUMAB [Suspect]
     Dosage: 300 mg, Q2W
     Route: 065
     Dates: start: 20100120
  5. OMALIZUMAB [Suspect]
     Dosage: 300 mg, Q2W
     Route: 058
     Dates: start: 20100210
  6. OMALIZUMAB [Suspect]
     Dosage: 300 mg, Q2W
     Route: 065
     Dates: start: 20100331
  7. OXEZE [Concomitant]
     Indication: PRODUCT USED FOR UNKNOWN INDICATION
     Dosage: UNK
     Route: 065
  8. TILADE [Concomitant]
     Indication: PRODUCT USED FOR UNKNOWN INDICATION
     Dosage: UNK
     Route: 065
  9. ATROVENT [Concomitant]
     Indication: PRODUCT USED FOR UNKNOWN INDICATION
     Dosage: UNK
     Route: 065
  10. SYMBICORT [Concomitant]
     Indication: PRODUCT USED FOR UNKNOWN INDICATION
     Dosage: UNK
     Route: 065
  11. UNIPHYL [Concomitant]
     Indication: PRODUCT USED FOR UNKNOWN INDICATION
     Dosage: UNK
     Route: 065
  12. SINGULAIR [Concomitant]
     Indication: PRODUCT USED FOR UNKNOWN INDICATION
     Dosage: UNK
     Route: 065
  13. EFFEXOR [Concomitant]
     Indication: PRODUCT USED FOR UNKNOWN INDICATION
     Dosage: UNK
     Route: 065
  14. CETIRIZINE [Concomitant]
     Indication: PRODUCT USED FOR UNKNOWN INDICATION
     Dosage: UNK
     Route: 065
  15. PANTOLOC [Concomitant]
     Indication: PRODUCT USED FOR UNKNOWN INDICATION
     Dosage: UNK
     Route: 065
  16. TRAZODONE [Concomitant]
     Indication: PRODUCT USED FOR UNKNOWN INDICATION
     Dosage: UNK
     Route: 065
  17. SALBUTAMOL [Concomitant]
     Indication: PRODUCT USED FOR UNKNOWN INDICATION
     Dosage: UNK
     Route: 065
  18. PULMICORT [Concomitant]

REACTIONS (21)
  - Asthma [Recovered/Resolved]
  - Major depression [Unknown]
  - Hypersensitivity [Unknown]
  - Asthma [Unknown]
  - Musculoskeletal chest pain [Unknown]
  - Hypoventilation [Unknown]
  - Nasopharyngitis [Unknown]
  - Sputum discoloured [Unknown]
  - Headache [Unknown]
  - Infection [Unknown]
  - Lower respiratory tract infection [Unknown]
  - Sinusitis [Unknown]
  - Tenderness [Unknown]
  - Sinus congestion [Unknown]
  - Chest pain [Unknown]
  - Swelling [Unknown]
  - Contusion [Unknown]
  - Nausea [Unknown]
  - Injection site pain [Unknown]
  - Upper respiratory tract congestion [Unknown]
  - Movement disorder [Unknown]
